FAERS Safety Report 15632331 (Version 1)
Quarter: 2018Q4

REPORT INFORMATION
  Report Type: Spontaneous
  Country: US (occurrence: US)
  Receive Date: 20181113
  Receipt Date: 20181113
  Transmission Date: 20190205
  Serious: Yes (Death)
  Sender: FDA-Public Use
  Company Number: None

PATIENT
  Age: 69 Year
  Sex: Male

DRUGS (3)
  1. VOTRIENT [Suspect]
     Active Substance: PAZOPANIB HYDROCHLORIDE
     Indication: METASTASES TO BONE
     Route: 048
     Dates: start: 20180912, end: 20181026
  2. HUMIRA 40MG/0.8 PFS [Concomitant]
     Dates: start: 20180209, end: 20181026
  3. VOTRIENT [Suspect]
     Active Substance: PAZOPANIB HYDROCHLORIDE
     Indication: METASTASES TO ADRENALS
     Route: 048
     Dates: start: 20180912, end: 20181026

REACTIONS (1)
  - Death [None]

NARRATIVE: CASE EVENT DATE: 20181112
